FAERS Safety Report 12980932 (Version 1)
Quarter: 2016Q4

REPORT INFORMATION
  Report Type: Spontaneous
  Country: US (occurrence: US)
  Receive Date: 20161128
  Receipt Date: 20161128
  Transmission Date: 20170207
  Serious: No
  Sender: FDA-Public Use
  Company Number: US-TAIHO ONCOLOGY INC-EU-2016-01625

PATIENT
  Sex: Male

DRUGS (1)
  1. LONSURF [Suspect]
     Active Substance: TIPIRACIL HYDROCHLORIDE\TRIFLURIDINE
     Indication: RECTAL CANCER
     Dosage: CYCLE 5
     Route: 048
     Dates: start: 20160120, end: 20160629

REACTIONS (7)
  - Pain [Unknown]
  - Diarrhoea [Unknown]
  - Insomnia [Unknown]
  - Adverse event [Unknown]
  - White blood cell count decreased [Unknown]
  - Parosmia [Unknown]
  - Renal disorder [Unknown]

NARRATIVE: CASE EVENT DATE: 2016
